FAERS Safety Report 10208940 (Version 1)
Quarter: 2014Q2

REPORT INFORMATION
  Report Type: Spontaneous
  Country: US (occurrence: US)
  Receive Date: 20140530
  Receipt Date: 20140530
  Transmission Date: 20141212
  Serious: Yes (Other)
  Sender: FDA-Public Use
  Company Number: US-B.I. PHARMACEUTICALS,INC./RIDGEFIELD-2014-BI-23743BP

PATIENT
  Sex: Male

DRUGS (5)
  1. SPIRIVA [Suspect]
     Indication: PRODUCT USED FOR UNKNOWN INDICATION
     Dosage: 18 MCG
     Route: 055
     Dates: start: 20140120
  2. SEROQUEL [Concomitant]
     Route: 048
  3. DUOMED [Concomitant]
     Route: 048
  4. RANITIDINE [Concomitant]
     Route: 048
  5. GABAPENTIN [Concomitant]
     Route: 048

REACTIONS (1)
  - Myocardial infarction [Unknown]
